FAERS Safety Report 23476871 (Version 1)
Quarter: 2024Q1

REPORT INFORMATION
  Report Type: Spontaneous
  Country: US (occurrence: US)
  Receive Date: 20240204
  Receipt Date: 20240204
  Transmission Date: 20240410
  Serious: No
  Sender: FDA-Public Use
  Company Number: US-EXELIXIS-CABO-23064761

PATIENT
  Sex: Female

DRUGS (2)
  1. CABOMETYX [Suspect]
     Active Substance: CABOZANTINIB S-MALATE
     Indication: Neoplasm malignant
     Dosage: UNK
     Dates: start: 20230612
  2. SILICON DIOXIDE [Suspect]
     Active Substance: SILICON DIOXIDE
     Indication: Product used for unknown indication

REACTIONS (3)
  - Nausea [Unknown]
  - Asthenia [Unknown]
  - Accidental exposure to product packaging [Unknown]

NARRATIVE: CASE EVENT DATE: 20230612
